FAERS Safety Report 8160427-1 (Version None)
Quarter: 2012Q1

REPORT INFORMATION
  Report Type: 
  Country: None (occurrence: None)
  Receive Date: 20120223
  Receipt Date: 20120221
  Transmission Date: 20120608
  Serious: Yes (Life-Threatening, Hospitalization)
  Sender: FDA-Public Use
  Company Number: CA-B.I. PHARMACEUTICALS,INC./RIDGEFIELD-2012-CN-00383CN

PATIENT
  Age: 67 Year
  Sex: Male

DRUGS (7)
  1. FUROSEMIDE [Concomitant]
     Route: 048
  2. PRADAXA [Suspect]
     Dosage: 300 MG
     Route: 048
  3. ATORVASTATIN CALCIUM [Concomitant]
     Route: 048
  4. BISOPROLOL [Concomitant]
     Route: 048
  5. VITAMIN B-12 [Concomitant]
     Route: 051
  6. HYDROCHLOROTHIAZIDE [Concomitant]
     Route: 048
  7. RAMIPRIL [Concomitant]
     Route: 048

REACTIONS (4)
  - CORONARY ARTERY OCCLUSION [None]
  - CARDIAC ARREST [None]
  - CORONARY ARTERY EMBOLISM [None]
  - VENTRICULAR FIBRILLATION [None]
